FAERS Safety Report 4929850-X (Version None)
Quarter: 2006Q1

REPORT INFORMATION
  Report Type: 
  Country: None (occurrence: None)
  Receive Date: 20060301
  Receipt Date: 20050823
  Transmission Date: 20060701
  Serious: Yes (Death, Hospitalization)
  Sender: FDA-Public Use
  Company Number: US-MERCK-0508USA03801

PATIENT
  Age: 53 Year
  Sex: Male
  Weight: 109 kg

DRUGS (2)
  1. VIOXX [Suspect]
     Indication: RHEUMATOID ARTHRITIS
     Route: 048
     Dates: start: 20010126, end: 20020621
  2. CELEBREX [Concomitant]
     Route: 065

REACTIONS (5)
  - ANXIETY [None]
  - DEPRESSION [None]
  - INTRACRANIAL ANEURYSM [None]
  - MYOCARDIAL INFARCTION [None]
  - SUICIDE ATTEMPT [None]
